FAERS Safety Report 10421291 (Version 2)
Quarter: 2014Q3

REPORT INFORMATION
  Report Type: Report from Study
  Country: DE (occurrence: DE)
  Receive Date: 20140831
  Receipt Date: 20140831
  Transmission Date: 20150326
  Serious: Yes (Hospitalization)
  Sender: FDA-Public Use
  Company Number: PHHY2014DE103434

PATIENT
  Sex: Male
  Weight: 100 kg

DRUGS (7)
  1. TORASEMID AL [Concomitant]
     Indication: CARDIAC FAILURE
     Dosage: 5 MG, UNK
     Dates: start: 201406
  2. RAMIPRIL AL [Concomitant]
     Dosage: 5 MG, UNK
     Dates: start: 201108
  3. BERODUAL N [Concomitant]
     Active Substance: FENOTEROL HYDROBROMIDE\IPRATROPIUM BROMIDE
     Indication: CHRONIC OBSTRUCTIVE PULMONARY DISEASE
     Dates: start: 20140331
  4. NEBIVOLOL AL [Concomitant]
     Indication: HYPERTENSION
     Dosage: 5 MG, UNK
     Dates: start: 201108
  5. SPIRO COMP [Concomitant]
  6. ULTIBRO BREEZHALER [Suspect]
     Active Substance: GLYCOPYRRONIUM\INDACATEROL
     Indication: CHRONIC OBSTRUCTIVE PULMONARY DISEASE
     Dosage: 1 DF, QD
     Route: 055
     Dates: start: 20140131
  7. HCT-BETA [Concomitant]
     Indication: HYPERTENSION
     Dosage: 25 MG, UNK

REACTIONS (1)
  - Chronic obstructive pulmonary disease [Recovered/Resolved]

NARRATIVE: CASE EVENT DATE: 20140611
